FAERS Safety Report 13094624 (Version 2)
Quarter: 2017Q1

REPORT INFORMATION
  Report Type: Spontaneous
  Country: US (occurrence: US)
  Receive Date: 20170106
  Receipt Date: 20170331
  Transmission Date: 20170428
  Serious: Yes (Other)
  Sender: FDA-Public Use
  Company Number: US-ELI_LILLY_AND_COMPANY-US201701002217

PATIENT
  Age: 59 Year
  Sex: Female
  Weight: 83.25 kg

DRUGS (4)
  1. MIRALAX [Concomitant]
     Active Substance: POLYETHYLENE GLYCOL 3350
     Indication: PRODUCT USED FOR UNKNOWN INDICATION
     Dosage: UNK, UNKNOWN
     Route: 065
  2. GAVISCON                           /01279001/ [Concomitant]
     Indication: PRODUCT USED FOR UNKNOWN INDICATION
     Dosage: UNK, UNKNOWN
     Route: 065
  3. TRULICITY [Suspect]
     Active Substance: DULAGLUTIDE
     Indication: TYPE 2 DIABETES MELLITUS
     Dosage: UNK, UNKNOWN
     Route: 058
     Dates: start: 20150513
  4. TRULICITY [Suspect]
     Active Substance: DULAGLUTIDE
     Dosage: 1.5 MG, WEEKLY (1/W)
     Route: 058
     Dates: start: 20150610

REACTIONS (9)
  - Abdominal pain [Unknown]
  - Vomiting projectile [Unknown]
  - Constipation [Unknown]
  - Asthenia [Unknown]
  - Diarrhoea [Unknown]
  - Abdominal distension [Unknown]
  - Vomiting [Unknown]
  - Change of bowel habit [Unknown]
  - Nausea [Unknown]

NARRATIVE: CASE EVENT DATE: 20160718
